FAERS Safety Report 15277118 (Version 1)
Quarter: 2018Q3

REPORT INFORMATION
  Report Type: Report from Study
  Country: US (occurrence: US)
  Receive Date: 20180814
  Receipt Date: 20180814
  Transmission Date: 20181010
  Serious: Yes (Other)
  Sender: FDA-Public Use
  Company Number: US-JAZZ-2018-US-007971

PATIENT
  Age: 53 Year
  Sex: Female

DRUGS (26)
  1. XYREM [Suspect]
     Active Substance: SODIUM OXYBATE
     Dosage: 3 G, SECOND DOSE
     Route: 048
     Dates: start: 2018
  2. FORTAMET ER [Concomitant]
  3. LACTOBACILLUS [Concomitant]
     Active Substance: LACTOBACILLUS ACIDOPHILUS
  4. XYREM [Suspect]
     Active Substance: SODIUM OXYBATE
     Dosage: 3 G, FIRST DOSE
     Route: 048
     Dates: start: 2018
  5. HYDROCHLOROTHIAZIDE W/LOSARTAN POTASSIUM [Concomitant]
     Active Substance: HYDROCHLOROTHIAZIDE\LOSARTAN POTASSIUM
  6. PRESERVISION AREDS [Concomitant]
     Active Substance: MINERALS\VITAMINS
  7. METOPROLOL. [Concomitant]
     Active Substance: METOPROLOL
  8. CETIRIZINE HCL [Concomitant]
     Active Substance: CETIRIZINE HYDROCHLORIDE
  9. FAMOTIDINE. [Concomitant]
     Active Substance: FAMOTIDINE
  10. NABUMETONE. [Concomitant]
     Active Substance: NABUMETONE
  11. ATORVASTATIN [Concomitant]
     Active Substance: ATORVASTATIN
  12. KRILL OIL [Concomitant]
     Active Substance: DIETARY SUPPLEMENT
  13. LOPRESSOR [Concomitant]
     Active Substance: METOPROLOL TARTRATE
  14. MAGNESIUM GLUCONATE [Concomitant]
     Active Substance: MAGNESIUM GLUCONATE
  15. MELATONIN [Concomitant]
     Active Substance: MELATONIN
  16. XYREM [Suspect]
     Active Substance: SODIUM OXYBATE
     Indication: NARCOLEPSY
     Dosage: 2.25 G, BID
     Route: 048
     Dates: start: 20180515, end: 2018
  17. TOPAMAX [Concomitant]
     Active Substance: TOPIRAMATE
  18. TURMERIC XTRA [Concomitant]
  19. VITAMIN B COMPLEX WITH C [Concomitant]
     Active Substance: ASCORBIC ACID\CALCIUM PANTOTHENATE\CYANOCOBALAMIN\NIACINAMIDE\PYRIDOXINE HYDROCHLORIDE\RIBOFLAVIN\THIAMINE MONONITRATE
  20. LIPITOR [Concomitant]
     Active Substance: ATORVASTATIN CALCIUM
  21. ESOMEPRAZOLE MAGNESIUM. [Concomitant]
     Active Substance: ESOMEPRAZOLE MAGNESIUM
  22. TRULICITY [Concomitant]
     Active Substance: DULAGLUTIDE
  23. METFORMIN [Concomitant]
     Active Substance: METFORMIN HYDROCHLORIDE
  24. ACETYLSALICYLIC ACID [Concomitant]
     Active Substance: ASPIRIN
  25. NUVIGIL [Concomitant]
     Active Substance: ARMODAFINIL
  26. PROGESTERONE. [Concomitant]
     Active Substance: PROGESTERONE

REACTIONS (2)
  - Sleep apnoea syndrome [Not Recovered/Not Resolved]
  - Dizziness [Recovered/Resolved]

NARRATIVE: CASE EVENT DATE: 2018
